FAERS Safety Report 21607547 (Version 1)
Quarter: 2022Q4

REPORT INFORMATION
  Report Type: Spontaneous
  Country: US (occurrence: US)
  Receive Date: 20221117
  Receipt Date: 20221117
  Transmission Date: 20230112
  Serious: Yes (Hospitalization, Other)
  Sender: FDA-Public Use
  Company Number: US-Indoco-000358

PATIENT
  Age: 60 Year
  Sex: Female

DRUGS (2)
  1. LACOSAMIDE [Suspect]
     Active Substance: LACOSAMIDE
     Dosage: 150 AND 200 MG TOTAL DAILY DOSING, 26 (200 MG)
  2. LEVETIRACETAM [Concomitant]
     Active Substance: LEVETIRACETAM
     Indication: Epilepsy

REACTIONS (8)
  - Status epilepticus [Unknown]
  - Acute respiratory failure [Unknown]
  - Depressed level of consciousness [Unknown]
  - Atrial fibrillation [Unknown]
  - Cardiac arrest [Unknown]
  - Suicide attempt [Unknown]
  - Intentional overdose [Unknown]
  - Metabolic acidosis [Unknown]
